FAERS Safety Report 9275363 (Version 1)
Quarter: 2013Q2

REPORT INFORMATION
  Report Type: Spontaneous
  Country: US (occurrence: US)
  Receive Date: 20130507
  Receipt Date: 20130507
  Transmission Date: 20140414
  Serious: No
  Sender: FDA-Public Use
  Company Number: US-PFIZER INC-2013137409

PATIENT
  Age: 45 Year
  Sex: Male
  Weight: 63.49 kg

DRUGS (4)
  1. ADVIL PM [Suspect]
     Indication: SLEEP DISORDER
     Dosage: 800 MG, 1X/DAY
     Dates: start: 2012
  2. ADVIL PM [Interacting]
     Dosage: 600 MG, 1X/DAY
  3. ADVIL PM [Interacting]
     Dosage: 400 MG, 1X/DAY
  4. ZOLPIDEM TARTRATE [Interacting]
     Indication: SLEEP DISORDER
     Dosage: 10 MG, 1X/DAY
     Dates: start: 201105

REACTIONS (3)
  - Incorrect dose administered [Unknown]
  - Drug interaction [Unknown]
  - Sleep disorder [Unknown]
